FAERS Safety Report 6880371-7 (Version None)
Quarter: 2010Q3

REPORT INFORMATION
  Report Type: 
  Country: None (occurrence: None)
  Receive Date: 20100728
  Receipt Date: 20100719
  Transmission Date: 20110219
  Serious: Yes (Hospitalization)
  Sender: FDA-Public Use
  Company Number: CN-KINGPHARMUSA00001-K201000914

PATIENT
  Age: 74 Year
  Sex: Female

DRUGS (2)
  1. TAPAZOLE [Suspect]
     Indication: BASEDOW'S DISEASE
     Dosage: 10 MG, TID
     Route: 048
     Dates: start: 20090122, end: 20090301
  2. PROPRANOLOL [Concomitant]
     Indication: BASEDOW'S DISEASE
     Dosage: 10 MG, TID
     Dates: start: 20090122

REACTIONS (10)
  - CHROMATURIA [None]
  - DECREASED APPETITE [None]
  - FAECES DISCOLOURED [None]
  - JAUNDICE [None]
  - JAUNDICE CHOLESTATIC [None]
  - LIVER FUNCTION TEST ABNORMAL [None]
  - NAUSEA [None]
  - OCULAR ICTERUS [None]
  - PRURITUS [None]
  - TREMOR [None]
